FAERS Safety Report 5157011-0 (Version None)
Quarter: 2006Q4

REPORT INFORMATION
  Report Type: 
  Country: None (occurrence: None)
  Receive Date: 20061127
  Receipt Date: 20061116
  Transmission Date: 20070319
  Serious: Yes (Other)
  Sender: FDA-Public Use
  Company Number: CH-JNJFOC-20061001892

PATIENT
  Sex: Male

DRUGS (1)
  1. PEVISONE [Suspect]
     Indication: BALANITIS
     Route: 065

REACTIONS (3)
  - INAPPROPRIATE SCHEDULE OF DRUG ADMINISTRATION [None]
  - MUCOSAL EROSION [None]
  - PHIMOSIS [None]
